FAERS Safety Report 20561124 (Version 1)
Quarter: 2022Q1

REPORT INFORMATION
  Report Type: Spontaneous
  Country: US (occurrence: None)
  Receive Date: 20220304
  Receipt Date: 20220304
  Transmission Date: 20220424
  Serious: Yes (Hospitalization)
  Sender: FDA-Public Use
  Company Number: None

PATIENT
  Age: 26 Year
  Sex: Female
  Weight: 54.43 kg

DRUGS (10)
  1. KYLEENA [Suspect]
     Active Substance: LEVONORGESTREL
  2. GLUTATHIONE [Concomitant]
     Active Substance: GLUTATHIONE
  3. VITAMIN D3 [Concomitant]
     Active Substance: CHOLECALCIFEROL
  4. VITAMIN B12 [Concomitant]
     Active Substance: CYANOCOBALAMIN
  5. alaskan fish oil [Concomitant]
  6. FENUGREEK SEED [Concomitant]
     Active Substance: FENUGREEK SEED
  7. beverly hill pill [Concomitant]
  8. MAGNESIUM [Suspect]
     Active Substance: MAGNESIUM
  9. MELATONIN [Concomitant]
     Active Substance: MELATONIN
  10. OREGANO LEAF OIL [Suspect]
     Active Substance: OREGANO LEAF OIL

REACTIONS (2)
  - Paranoia [None]
  - Insomnia [None]

NARRATIVE: CASE EVENT DATE: 20220121
